FAERS Safety Report 4951644-X (Version None)
Quarter: 2006Q1

REPORT INFORMATION
  Report Type: 
  Country: None (occurrence: None)
  Receive Date: 20060322
  Receipt Date: 20060322
  Transmission Date: 20060701
  Serious: Yes (Other)
  Sender: FDA-Public Use
  Company Number: None

PATIENT
  Age: 47 Year
  Sex: Male
  Weight: 90.7194 kg

DRUGS (1)
  1. NAPROXEN [Suspect]

REACTIONS (7)
  - CHEST PAIN [None]
  - DIFFICULTY IN WALKING [None]
  - ERYTHEMA [None]
  - HYPERVENTILATION [None]
  - HYPOAESTHESIA [None]
  - MOVEMENT DISORDER [None]
  - UNEVALUABLE EVENT [None]
